FAERS Safety Report 9011212 (Version 1)
Quarter: 2013Q1

REPORT INFORMATION
  Report Type: Spontaneous
  Country: US (occurrence: US)
  Receive Date: 20130109
  Receipt Date: 20130109
  Transmission Date: 20140127
  Serious: No
  Sender: FDA-Public Use
  Company Number: US-ASTRAZENECA-2013SE00538

PATIENT
  Age: 64 Year
  Sex: Male
  Weight: 112.5 kg

DRUGS (4)
  1. NEXIUM [Suspect]
     Indication: BARRETT^S OESOPHAGUS
     Route: 048
  2. NEXIUM [Suspect]
     Indication: BARRETT^S OESOPHAGUS
     Route: 048
  3. CYMBALTA [Suspect]
     Indication: DEPRESSION
     Route: 048
  4. SYNTHROID [Concomitant]
     Indication: THYROID DISORDER
     Route: 048

REACTIONS (7)
  - Heart rate increased [Unknown]
  - Hypotension [Unknown]
  - Vitamin D decreased [Unknown]
  - Blood magnesium decreased [Unknown]
  - Depression [Unknown]
  - Off label use [Unknown]
  - Off label use [Unknown]
